FAERS Safety Report 21819142 (Version 15)
Quarter: 2024Q1

REPORT INFORMATION
  Report Type: Report from Study
  Country: US (occurrence: US)
  Receive Date: 20230104
  Receipt Date: 20240116
  Transmission Date: 20240410
  Serious: No
  Sender: FDA-Public Use
  Company Number: US-002147023-NVSC2023US001385

PATIENT
  Age: 58 Year
  Sex: Male

DRUGS (2)
  1. KESIMPTA [Suspect]
     Active Substance: OFATUMUMAB
     Indication: Relapsing multiple sclerosis
     Dosage: 20 MG, QMO
     Route: 058
     Dates: start: 20221216
  2. COCONUT OIL [Concomitant]
     Active Substance: COCONUT OIL
     Indication: Product used for unknown indication
     Dosage: UNK
     Route: 065
     Dates: start: 20240109

REACTIONS (13)
  - Tremor [Unknown]
  - Condition aggravated [Unknown]
  - Muscle spasms [Recovering/Resolving]
  - Pain in extremity [Unknown]
  - Gait disturbance [Recovering/Resolving]
  - Temperature intolerance [Unknown]
  - Drug ineffective [Unknown]
  - Nasopharyngitis [Unknown]
  - Dyspnoea [Unknown]
  - Nasal congestion [Unknown]
  - Illness [Unknown]
  - Vomiting [Unknown]
  - Fall [Unknown]

NARRATIVE: CASE EVENT DATE: 20230103
